FAERS Safety Report 7371825-8 (Version None)
Quarter: 2011Q1

REPORT INFORMATION
  Report Type: 
  Country: None (occurrence: None)
  Receive Date: 20110324
  Receipt Date: 20110316
  Transmission Date: 20110831
  Serious: Yes (Death, Hospitalization)
  Sender: FDA-Public Use
  Company Number: DE-ROCHE-766274

PATIENT
  Age: 67 Year
  Sex: Female

DRUGS (2)
  1. TAXOL [Suspect]
     Route: 040
     Dates: end: 20100406
  2. HERCEPTIN [Suspect]
     Dosage: FORM: INFUSION
     Route: 042
     Dates: end: 20100406

REACTIONS (12)
  - PNEUMONIA [None]
  - RENAL FAILURE ACUTE [None]
  - PNEUMOTHORAX [None]
  - INFECTION [None]
  - DEATH [None]
  - DYSPNOEA [None]
  - SHOCK [None]
  - ACUTE RESPIRATORY DISTRESS SYNDROME [None]
  - SEPSIS [None]
  - MULTI-ORGAN FAILURE [None]
  - PULMONARY FUNCTION TEST DECREASED [None]
  - RENAL IMPAIRMENT [None]
